FAERS Safety Report 6551631-4 (Version None)
Quarter: 2010Q1

REPORT INFORMATION
  Report Type: 
  Country: None (occurrence: None)
  Receive Date: 20100126
  Receipt Date: 20100119
  Transmission Date: 20100710
  Serious: Yes (Other)
  Sender: FDA-Public Use
  Company Number: CO-ELI_LILLY_AND_COMPANY-CO200912003470

PATIENT
  Age: 80 Year
  Sex: Male

DRUGS (9)
  1. HUMALOG MIX 75/25 [Suspect]
     Indication: TYPE 2 DIABETES MELLITUS
     Dosage: 12 IU, EACH MORNING
     Route: 058
     Dates: start: 20091209
  2. HUMALOG MIX 75/25 [Suspect]
     Dosage: 10 IU, EACH EVENING
     Route: 058
     Dates: start: 20091209
  3. HUMALOG MIX 75/25 [Suspect]
     Dosage: 8 IU, EACH EVENING
     Route: 058
  4. HUMALOG MIX 75/25 [Suspect]
     Dosage: 6 IU, EACH EVENING
     Route: 058
  5. HUMALOG MIX 75/25 [Suspect]
     Dosage: 4 IU, EACH EVENING
     Route: 058
     Dates: end: 20091216
  6. ENALAPRIL MALEATE [Concomitant]
     Dosage: UNK, UNKNOWN
     Route: 065
  7. THEOPHYLLINE [Concomitant]
     Dosage: UNK, UNKNOWN
     Route: 065
  8. OXYGEN [Concomitant]
     Dosage: UNK, OTHER
     Route: 065
  9. LANTUS [Concomitant]
     Dosage: 16 IU, UNKNOWN
     Route: 065

REACTIONS (2)
  - CONVULSION [None]
  - HYPOGLYCAEMIA [None]
